FAERS Safety Report 8869727 (Version 1)
Quarter: 2012Q4

REPORT INFORMATION
  Report Type: 
  Country: SE (occurrence: SE)
  Receive Date: 20121028
  Receipt Date: 20121028
  Transmission Date: 20130627
  Serious: Yes (Death, Hospitalization, Other)
  Sender: FDA-Public Use
  Company Number: SE-JNJFOC-20121010146

PATIENT
  Age: 80 Year
  Sex: Female

DRUGS (4)
  1. REMICADE [Suspect]
     Indication: RHEUMATOID ARTHRITIS
     Route: 042
  2. NOVOMIX [Concomitant]
     Route: 065
  3. INDERAL [Concomitant]
     Route: 065
  4. LASIX RETARD [Concomitant]
     Route: 065

REACTIONS (1)
  - Cerebrovascular accident [Fatal]
